FAERS Safety Report 4285395-4 (Version None)
Quarter: 2004Q1

REPORT INFORMATION
  Report Type: 
  Country: None (occurrence: None)
  Receive Date: 20040202
  Receipt Date: 20040116
  Transmission Date: 20041129
  Serious: Yes (Death, Life-Threatening)
  Sender: FDA-Public Use
  Company Number: 2004IM000075

PATIENT
  Age: 55 Year
  Sex: Male

DRUGS (1)
  1. ADVAFERON (A643_INTERFERON ALFACON-1) [Suspect]
     Dosage: 18 MU;QD;SUBCUTANEOUS
     Route: 058
     Dates: start: 20040105, end: 20040101

REACTIONS (1)
  - PNEUMONIA [None]
